FAERS Safety Report 5017254-3 (Version None)
Quarter: 2006Q2

REPORT INFORMATION
  Report Type: 
  Country: None (occurrence: None)
  Receive Date: 20060414
  Receipt Date: 20060303
  Transmission Date: 20061013
  Serious: No
  Sender: FDA-Public Use
  Company Number: 2006SP001058

PATIENT
  Age: 52 Year
  Sex: Female
  Weight: 73.9363 kg

DRUGS (8)
  1. LUNESTA [Suspect]
     Indication: INSOMNIA
     Dosage: SEE IMAGE
     Route: 048
     Dates: start: 20050101, end: 20060301
  2. LUNESTA [Suspect]
     Indication: INSOMNIA
     Dosage: SEE IMAGE
     Route: 048
     Dates: start: 20060301
  3. XANAX [Concomitant]
  4. ZYRTEC [Concomitant]
  5. SINGULAIR [Concomitant]
  6. ADVAIR DISKUS 100/50 [Concomitant]
  7. CLONAZEPAM [Concomitant]
  8. GLUCOSAMINE W/CHONDROITIN [Concomitant]

REACTIONS (1)
  - INSOMNIA [None]
